FAERS Safety Report 20092937 (Version 2)
Quarter: 2025Q3

REPORT INFORMATION
  Report Type: Report from Study
  Country: BR (occurrence: BR)
  Receive Date: 20211120
  Receipt Date: 20250715
  Transmission Date: 20251021
  Serious: Yes (Hospitalization)
  Sender: NOVARTIS
  Company Number: BR-NOVARTISPH-PHHY2018BR131146

PATIENT
  Age: 51 Year
  Sex: Female
  Weight: 92 kg

DRUGS (6)
  1. COSENTYX [Suspect]
     Active Substance: SECUKINUMAB
     Indication: Psoriatic arthropathy
     Route: 058
     Dates: start: 20180723
  2. COSENTYX [Suspect]
     Active Substance: SECUKINUMAB
     Route: 058
     Dates: start: 20180726
  3. COSENTYX [Suspect]
     Active Substance: SECUKINUMAB
     Dosage: 300 MG, QMO
     Route: 058
  4. COSENTYX [Suspect]
     Active Substance: SECUKINUMAB
     Dosage: 300 MG, QMO
     Route: 058
     Dates: start: 20180923
  5. COSENTYX [Suspect]
     Active Substance: SECUKINUMAB
     Route: 065
     Dates: start: 20200529
  6. COSENTYX [Suspect]
     Active Substance: SECUKINUMAB
     Route: 065
     Dates: start: 201807

REACTIONS (29)
  - Gastrointestinal disorder [Recovering/Resolving]
  - Emotional distress [Unknown]
  - Skin lesion [Not Recovered/Not Resolved]
  - Macule [Recovering/Resolving]
  - Overweight [Not Recovered/Not Resolved]
  - Nail disorder [Recovering/Resolving]
  - Influenza [Recovered/Resolved]
  - Cough [Unknown]
  - Oropharyngeal discomfort [Unknown]
  - Dysphonia [Unknown]
  - Aphonia [Unknown]
  - Rhinitis [Recovered/Resolved]
  - Dry skin [Not Recovered/Not Resolved]
  - Pain [Not Recovered/Not Resolved]
  - Candida infection [Recovered/Resolved]
  - Skin burning sensation [Recovered/Resolved]
  - Memory impairment [Not Recovered/Not Resolved]
  - Head discomfort [Recovering/Resolving]
  - Burning sensation [Recovered/Resolved]
  - Feeling abnormal [Recovered/Resolved]
  - Osteoporosis [Not Recovered/Not Resolved]
  - Asthenia [Not Recovered/Not Resolved]
  - Stress [Not Recovered/Not Resolved]
  - Anxiety [Not Recovered/Not Resolved]
  - Stomatitis [Not Recovered/Not Resolved]
  - Lip dry [Not Recovered/Not Resolved]
  - Hypersensitivity [Unknown]
  - Psoriasis [Unknown]
  - Pain of skin [Not Recovered/Not Resolved]

NARRATIVE: CASE EVENT DATE: 20181205
